FAERS Safety Report 14878608 (Version 1)
Quarter: 2018Q2

REPORT INFORMATION
  Report Type: Spontaneous
  Country: CN (occurrence: CN)
  Receive Date: 20180511
  Receipt Date: 20180511
  Transmission Date: 20180711
  Serious: Yes (Other)
  Sender: FDA-Public Use
  Company Number: CN-BAXTER-2018BAX013914

PATIENT
  Age: 61 Year
  Sex: Male
  Weight: 60.9 kg

DRUGS (4)
  1. 5% GLUCOSE  INJECTION [Suspect]
     Active Substance: DEXTROSE
     Dosage: ABOUT 400ML WAS COMPLETED OUT OF 500 ML OF GLUCOSE SOLUTION + 1 VIAL OF WATER-SOLUBLE VITAMIN
     Route: 041
     Dates: start: 20180305, end: 20180305
  2. WATER-SOLUBLE VITAMIN [Suspect]
     Active Substance: VITAMINS
     Indication: INFUSION
     Dosage: 1 VIAL
     Route: 041
     Dates: start: 20180228
  3. 5% GLUCOSE  INJECTION [Suspect]
     Active Substance: DEXTROSE
     Indication: MEDICATION DILUTION
     Route: 041
     Dates: start: 20180228
  4. WATER-SOLUBLE VITAMIN [Suspect]
     Active Substance: VITAMINS
     Dosage: ABOUT 400ML WAS COMPLETED OUT OF 500 ML OF GLUCOSE SOLUTION + 1 VIAL OF WATER-SOLUBLE VITAMIN
     Route: 041
     Dates: start: 20180305, end: 20180305

REACTIONS (4)
  - Chills [Recovered/Resolved]
  - Pyrexia [Recovered/Resolved]
  - Temperature intolerance [Recovered/Resolved]
  - Palpitations [Recovered/Resolved]

NARRATIVE: CASE EVENT DATE: 20180305
